FAERS Safety Report 14260836 (Version 1)
Quarter: 2017Q4

REPORT INFORMATION
  Report Type: Spontaneous
  Country: US (occurrence: US)
  Receive Date: 20171207
  Receipt Date: 20171207
  Transmission Date: 20180321
  Serious: No
  Sender: FDA-Public Use
  Company Number: US-WOCKHARDT USA, LLC-2036916

PATIENT
  Sex: Female

DRUGS (1)
  1. ENALAPRIL MALEATE. [Suspect]
     Active Substance: ENALAPRIL MALEATE

REACTIONS (3)
  - Cough [Unknown]
  - Vomiting [Unknown]
  - Angioedema [Unknown]
